FAERS Safety Report 5155801-1 (Version None)
Quarter: 2006Q4

REPORT INFORMATION
  Report Type: 
  Country: None (occurrence: None)
  Receive Date: 20061113
  Receipt Date: 20061027
  Transmission Date: 20070319
  Serious: Yes (Death)
  Sender: FDA-Public Use
  Company Number: 8018150

PATIENT
  Age: 66 Year
  Sex: Male

DRUGS (10)
  1. LORTAB [Suspect]
     Indication: MUSCULOSKELETAL CHEST PAIN
     Dosage: PO
     Route: 048
     Dates: start: 20030926, end: 20030927
  2. LORTAB [Suspect]
     Indication: MUSCULOSKELETAL CHEST PAIN
     Dosage: PO
     Route: 048
  3. PERCOCET [Suspect]
     Indication: MUSCULOSKELETAL CHEST PAIN
     Dosage: PRN PO
     Route: 048
     Dates: start: 20030921, end: 20030925
  4. ZOCOR [Suspect]
     Indication: HYPERCHOLESTEROLAEMIA
     Dosage: PO
     Route: 048
  5. ALCOHOL [Suspect]
     Dosage: PO
     Route: 048
  6. PRAVACHOL [Suspect]
     Indication: HYPERCHOLESTEROLAEMIA
     Dates: end: 20031110
  7. ANTIHYPERTENSIVE [Concomitant]
  8. ATENOLOL [Concomitant]
  9. ENALAPRIL MALEATE [Concomitant]
  10. POTASSIUM CHLORIDE [Concomitant]

REACTIONS (3)
  - ALCOHOLISM [None]
  - HEPATIC FAILURE [None]
  - HEPATITIS C POSITIVE [None]
